FAERS Safety Report 7324299-7 (Version None)
Quarter: 2011Q1

REPORT INFORMATION
  Report Type: 
  Country: None (occurrence: None)
  Receive Date: 20110202
  Receipt Date: 20101018
  Transmission Date: 20110831
  Serious: No
  Sender: FDA-Public Use
  Company Number: 2010-13767

PATIENT
  Age: 66 Year
  Sex: Male
  Weight: 70.3 kg

DRUGS (2)
  1. RAPAFLO [Suspect]
     Indication: BENIGN PROSTATIC HYPERPLASIA
     Dosage: 8 MG, DAILY, ORAL
     Route: 048
     Dates: start: 20101017, end: 20101017
  2. BIAXIN [Suspect]
     Indication: PROPHYLAXIS
     Dosage: 1 TABLET, BID, ORAL
     Route: 048
     Dates: start: 20100927

REACTIONS (2)
  - LABELLED DRUG-DISEASE INTERACTION MEDICATION ERROR [None]
  - ABDOMINAL PAIN UPPER [None]
